FAERS Safety Report 25198445 (Version 1)
Quarter: 2025Q2

REPORT INFORMATION
  Report Type: Spontaneous
  Country: US (occurrence: None)
  Receive Date: 20250414
  Receipt Date: 20250414
  Transmission Date: 20250716
  Serious: Yes (Hospitalization)
  Sender: FDA-CTU
  Company Number: None

PATIENT
  Age: 53 Year
  Sex: Female

DRUGS (1)
  1. FORTEO [Suspect]
     Active Substance: TERIPARATIDE
     Indication: Osteoporosis
     Dosage: 20MCG QD

REACTIONS (8)
  - Urinary tract infection [None]
  - Joint injury [None]
  - Weight increased [None]
  - Dry skin [None]
  - Pruritus [None]
  - Injection site pain [None]
  - Injection site pruritus [None]
  - Injection site irritation [None]
